FAERS Safety Report 19182446 (Version 3)
Quarter: 2022Q1

REPORT INFORMATION
  Report Type: Other
  Country: US (occurrence: None)
  Receive Date: 20210427
  Receipt Date: 20220225
  Transmission Date: 20220424
  Serious: Yes (Other)
  Sender: FDA-Public Use
  Company Number: US-ROCHE-2817142

PATIENT
  Age: 70 Year
  Sex: Male

DRUGS (3)
  1. OCREVUS [Suspect]
     Active Substance: OCRELIZUMAB
     Indication: Multiple sclerosis
     Route: 042
     Dates: start: 20200825
  2. OCREVUS [Suspect]
     Active Substance: OCRELIZUMAB
     Indication: Primary progressive multiple sclerosis
     Dosage: DATE OF TREATMENT : 25-AUG-2020, 18-FEB-2020, 07-FEB-2018, 27-FEB-2019 AND 08-?AUG-2020, 27-AUG-2019
     Route: 042
  3. OCREVUS [Suspect]
     Active Substance: OCRELIZUMAB
     Route: 042
     Dates: start: 20200225, end: 20200825

REACTIONS (2)
  - COVID-19 [Recovered/Resolved]
  - Perforated ulcer [Recovered/Resolved]

NARRATIVE: CASE EVENT DATE: 20210101
